FAERS Safety Report 5751087-5 (Version None)
Quarter: 2008Q2

REPORT INFORMATION
  Report Type: 
  Country: None (occurrence: None)
  Receive Date: 20080528
  Receipt Date: 20080519
  Transmission Date: 20081010
  Serious: Yes (Other)
  Sender: FDA-Public Use
  Company Number: US-WATSON-2008-00479

PATIENT
  Age: 63 Year
  Sex: Female

DRUGS (9)
  1. PREDNISONE (WATSON LABORATORIES) [Suspect]
     Indication: ARTHRITIS
     Dosage: 5 MG, BID
     Route: 048
     Dates: end: 20071001
  2. PREDNISONE (WATSON LABORATORIES) [Suspect]
     Dosage: 10 MG, BID
     Route: 048
     Dates: start: 20051101
  3. BONIVA [Suspect]
     Dosage: 150 MG Q MONTH
     Route: 048
     Dates: start: 20071015
  4. HYDROCODONE BITARTRATE + ACETAMINOPHEN [Suspect]
     Dosage: UNK, UNKNOWN
     Route: 048
     Dates: start: 20070101
  5. PLAQUENIL [Concomitant]
     Dosage: UNK, UNKNOWN
  6. VITAMIN D [Concomitant]
     Dosage: UNK, UNKNOWN
  7. CALCIUM [Concomitant]
     Dosage: UNK, UNKNOWN
  8. CENTRUM [Concomitant]
     Dosage: UNK, UNKNOWN
  9. METFORMIN HCL [Concomitant]

REACTIONS (11)
  - ABDOMINAL PAIN UPPER [None]
  - ARTHRITIS [None]
  - CUSHINGOID [None]
  - HYPOAESTHESIA [None]
  - INFLUENZA LIKE ILLNESS [None]
  - NAUSEA [None]
  - OEDEMA PERIPHERAL [None]
  - OSTEOPOROSIS [None]
  - PAIN [None]
  - PARAESTHESIA [None]
  - ROTATOR CUFF SYNDROME [None]
